FAERS Safety Report 21890315 (Version 1)
Quarter: 2023Q1

REPORT INFORMATION
  Report Type: Other
  Country: CA (occurrence: CA)
  Receive Date: 20230120
  Receipt Date: 20230120
  Transmission Date: 20230417
  Serious: Yes (Other)
  Sender: FDA-Public Use
  Company Number: CA-PFIZER INC-202300024608

PATIENT
  Age: 53 Year
  Sex: Female

DRUGS (11)
  1. ESTRADIOL [Suspect]
     Active Substance: ESTRADIOL
     Dosage: UNK
     Route: 065
  2. LORAZEPAM [Suspect]
     Active Substance: LORAZEPAM
     Dosage: 1 MG 1 EVERY 24 HOURS
     Route: 065
  3. SOMATROPIN [Suspect]
     Active Substance: SOMATROPIN
     Route: 065
  4. VARENICLINE TARTRATE [Suspect]
     Active Substance: VARENICLINE TARTRATE
     Dosage: 0.5 MG 1 EVERY 24 HOURS
     Route: 065
  5. BUDESONIDE\FORMOTEROL [Suspect]
     Active Substance: BUDESONIDE\FORMOTEROL
     Dosage: 1 EVERY 12 HOURS
     Route: 065
  6. LINOLEIC ACID [Suspect]
     Active Substance: LINOLEIC ACID
     Dosage: 1 EVERY 8 HOURS
     Route: 048
  7. MSM [Suspect]
     Active Substance: DIMETHYL SULFONE
     Route: 065
  8. PROGESTERONE [Suspect]
     Active Substance: PROGESTERONE
     Dosage: 100 MG
     Route: 065
  9. VENLAFAXINE [Suspect]
     Active Substance: VENLAFAXINE HYDROCHLORIDE
     Dosage: 150 MG
     Route: 065
  10. VITAMIN D NOS [Suspect]
     Active Substance: VITAMIN D NOS
     Dosage: 1 EVERY 24 HOURS
     Route: 048
  11. VITAMINS NOS [Suspect]
     Active Substance: VITAMINS
     Dosage: 1 EVERY 12 HOURS
     Route: 048

REACTIONS (1)
  - Hepatotoxicity [Unknown]
